FAERS Safety Report 7047524-9 (Version None)
Quarter: 2010Q4

REPORT INFORMATION
  Report Type: 
  Country: None (occurrence: None)
  Receive Date: 20101015
  Receipt Date: 20101006
  Transmission Date: 20110411
  Serious: Yes (Other)
  Sender: FDA-Public Use
  Company Number: US-PFIZER INC-2010127754

PATIENT
  Sex: Male
  Weight: 84.354 kg

DRUGS (13)
  1. CHANTIX [Suspect]
     Indication: SMOKING CESSATION THERAPY
     Dosage: 1 MG, 2X/DAY
     Route: 048
     Dates: start: 20100801, end: 20100901
  2. ADVAIR DISKUS 100/50 [Concomitant]
     Indication: ASTHMA
     Dosage: UNK
  3. MULTI-VITAMINS [Concomitant]
     Dosage: UNK
  4. GLIPIZIDE [Concomitant]
     Indication: DIABETES MELLITUS
     Dosage: 5 MG, 1X/DAY
  5. METHOTREXATE [Concomitant]
     Indication: ANKYLOSING SPONDYLITIS
     Dosage: UNK
  6. REMICADE [Concomitant]
     Indication: ANKYLOSING SPONDYLITIS
     Dosage: UNK
  7. LISINOPRIL [Concomitant]
     Indication: VASCULAR GRAFT
     Dosage: 10 MG, 2X/DAY
  8. ATENOLOL [Concomitant]
     Indication: VASCULAR GRAFT
     Dosage: UNK
  9. ACETYLSALICYLIC ACID [Concomitant]
     Indication: VASCULAR GRAFT
     Dosage: UNK
  10. LOVASTATIN [Concomitant]
     Dosage: 20 MG, UNK
  11. ZANTAC [Concomitant]
     Indication: ABDOMINAL DISCOMFORT
     Dosage: UNK
  12. CALCIUM [Concomitant]
     Dosage: UNK
  13. FOLIC ACID [Concomitant]
     Dosage: UNK

REACTIONS (1)
  - CONFUSIONAL STATE [None]
